FAERS Safety Report 20166218 (Version 1)
Quarter: 2021Q4

REPORT INFORMATION
  Report Type: Report from Study
  Country: BR (occurrence: BR)
  Receive Date: 20211209
  Receipt Date: 20211209
  Transmission Date: 20220303
  Serious: Yes (Hospitalization)
  Sender: FDA-Public Use
  Company Number: BR-ABBVIE-21K-020-4190211-00

PATIENT
  Sex: Female
  Weight: 66 kg

DRUGS (1)
  1. RINVOQ [Suspect]
     Active Substance: UPADACITINIB
     Indication: Rheumatoid arthritis
     Route: 048
     Dates: start: 20211016, end: 20211102

REACTIONS (9)
  - Coagulopathy [Recovering/Resolving]
  - Rash macular [Recovering/Resolving]
  - Pain in extremity [Recovered/Resolved]
  - Arthralgia [Recovered/Resolved]
  - Skin discolouration [Recovering/Resolving]
  - Peripheral coldness [Recovering/Resolving]
  - Peripheral artery thrombosis [Recovering/Resolving]
  - Poor peripheral circulation [Recovering/Resolving]
  - Purulence [Recovering/Resolving]

NARRATIVE: CASE EVENT DATE: 20210101
